FAERS Safety Report 25760231 (Version 1)
Quarter: 2025Q3

REPORT INFORMATION
  Report Type: Spontaneous
  Country: US (occurrence: US)
  Receive Date: 20250904
  Receipt Date: 20250904
  Transmission Date: 20251021
  Serious: No
  Sender: MYLAN
  Company Number: US-MYLANLABS-2025M1073361

PATIENT
  Sex: Female

DRUGS (1)
  1. ESTRADIOL TRANSDERMAL SYSTEM [Suspect]
     Active Substance: ESTRADIOL
     Indication: Product used for unknown indication
     Dosage: 0.075 MILLIGRAM, QD (PER DAY, ONCE WEEKLY)

REACTIONS (6)
  - Cluster headache [Unknown]
  - Hormone level abnormal [Unknown]
  - Product substitution issue [Unknown]
  - Therapeutic response changed [Unknown]
  - Absorbable device issue [Unknown]
  - Product adhesion issue [Unknown]
